FAERS Safety Report 9003078 (Version 1)
Quarter: 2013Q1

REPORT INFORMATION
  Report Type: Spontaneous
  Country: US (occurrence: US)
  Receive Date: 20130108
  Receipt Date: 20130108
  Transmission Date: 20140127
  Serious: No
  Sender: FDA-Public Use
  Company Number: US-B.I. PHARMACEUTICALS,INC./RIDGEFIELD-2012-BI-04241BP

PATIENT
  Sex: Female
  Weight: 75 kg

DRUGS (15)
  1. SPIRIVA [Suspect]
     Indication: CHRONIC OBSTRUCTIVE PULMONARY DISEASE
     Dosage: 18 MCG
     Route: 055
     Dates: start: 201207
  2. PROZAC [Concomitant]
  3. CLONIDINE [Concomitant]
     Route: 048
  4. PRAVASTATIN [Concomitant]
     Indication: BLOOD CHOLESTEROL INCREASED
     Route: 048
  5. LEVOTHYROXINE [Concomitant]
     Indication: HYPOTHYROIDISM
     Route: 048
  6. COZAAR [Concomitant]
  7. LOVAZA [Concomitant]
     Route: 048
  8. VITAMIN D [Concomitant]
     Route: 048
  9. GABAPENTIN [Concomitant]
     Route: 048
  10. HYDROCHLOROTHIAZIDE [Concomitant]
     Route: 048
  11. VITAMIN [Concomitant]
  12. DIOVAN [Concomitant]
     Indication: HYPERTENSION
     Route: 048
  13. VENTOLIN [Concomitant]
  14. ZYRTEC [Concomitant]
     Route: 048
  15. VICODIN [Concomitant]

REACTIONS (3)
  - Dry mouth [Not Recovered/Not Resolved]
  - Product quality issue [Recovered/Resolved]
  - Product quality issue [Recovered/Resolved]
